FAERS Safety Report 23719550 (Version 1)
Quarter: 2024Q2

REPORT INFORMATION
  Report Type: Spontaneous
  Country: CN (occurrence: CN)
  Receive Date: 20240408
  Receipt Date: 20240408
  Transmission Date: 20240715
  Serious: Yes (Hospitalization, Other)
  Sender: FDA-Public Use
  Company Number: CN-SA-SAC20240405000393

PATIENT
  Age: 61 Year
  Sex: Female
  Weight: 50.7 kg

DRUGS (3)
  1. ELOXATIN [Suspect]
     Active Substance: OXALIPLATIN
     Indication: Neoplasm
     Dosage: 180 MG, QD, D1
     Route: 041
     Dates: start: 20240315, end: 20240315
  2. GIMERACIL\OTERACIL\TEGAFUR [Suspect]
     Active Substance: GIMERACIL\OTERACIL POTASSIUM\TEGAFUR
     Indication: Neoplasm
     Dosage: 60 MG, BID, D1-14
     Route: 048
     Dates: start: 20240315, end: 20240318
  3. DEXTROSE [Concomitant]
     Active Substance: DEXTROSE\DEXTROSE MONOHYDRATE
     Indication: Medication dilution
     Dosage: 500 ML, QD
     Route: 041
     Dates: start: 20240315, end: 20240315

REACTIONS (4)
  - Myelosuppression [Recovering/Resolving]
  - Mental disorder [Unknown]
  - Sleep disorder [Unknown]
  - Decreased appetite [Unknown]

NARRATIVE: CASE EVENT DATE: 20240318
